FAERS Safety Report 20363081 (Version 1)
Quarter: 2022Q1

REPORT INFORMATION
  Report Type: Spontaneous
  Country: US (occurrence: US)
  Receive Date: 20220121
  Receipt Date: 20220121
  Transmission Date: 20220423
  Serious: Yes (Hospitalization)
  Sender: FDA-Public Use
  Company Number: US-PFIZER INC-2021716247

PATIENT
  Age: 71 Year
  Sex: Female
  Weight: 79.38 kg

DRUGS (1)
  1. METHOTREXATE SODIUM [Suspect]
     Active Substance: METHOTREXATE SODIUM
     Dosage: UNK

REACTIONS (4)
  - Urticaria [Unknown]
  - Rash [Unknown]
  - Immune system disorder [Unknown]
  - Skin burning sensation [Unknown]
